FAERS Safety Report 12564483 (Version 3)
Quarter: 2017Q1

REPORT INFORMATION
  Report Type: Report from Study
  Country: DE (occurrence: DE)
  Receive Date: 20160718
  Receipt Date: 20170124
  Transmission Date: 20170428
  Serious: Yes (Hospitalization)
  Sender: FDA-Public Use
  Company Number: DE-ROCHE-1736313

PATIENT
  Age: 50 Year
  Sex: Male
  Weight: 64 kg

DRUGS (21)
  1. PREDNISOLON [Concomitant]
     Active Substance: PREDNISOLONE
     Indication: ADRENAL INSUFFICIENCY
  2. ASPIRIN. [Concomitant]
     Active Substance: ASPIRIN
  3. AMLODIPIN [Concomitant]
     Active Substance: AMLODIPINE BESYLATE
     Indication: HYPERTENSION
     Route: 065
     Dates: start: 20160314, end: 20160609
  4. RAMIPRIL. [Concomitant]
     Active Substance: RAMIPRIL
     Indication: HYPERTENSION
     Route: 065
     Dates: start: 20160314
  5. GRANISETRON [Concomitant]
     Active Substance: GRANISETRON
     Route: 065
     Dates: start: 20160502, end: 20160502
  6. FOSAPREPITANT [Concomitant]
     Active Substance: FOSAPREPITANT
     Route: 065
     Dates: start: 20160316, end: 20160316
  7. ATEZOLIZUMAB [Suspect]
     Active Substance: ATEZOLIZUMAB
     Indication: NON-SMALL CELL LUNG CANCER
     Dosage: DATE OF LAST DOSE OF ATEZOLIZUMAB 1200 MG PRIOR TO THE EVENT ONSET WAS ON 16/MAR/2016.
     Route: 042
     Dates: start: 20160316
  8. PACLITAXEL. [Suspect]
     Active Substance: PACLITAXEL
     Indication: NON-SMALL CELL LUNG CANCER
     Dosage: DATE OF LAST DOSE OF PACLITAXEL 346 MG PRIOR TO EVENT ONSET WAS ON 16/MAR/2016
     Route: 042
     Dates: start: 20160316
  9. DIMETINDENE [Concomitant]
     Active Substance: DIMETHINDENE
     Route: 065
     Dates: start: 20160502, end: 20160502
  10. DEXAMETHASON [Concomitant]
     Active Substance: DEXAMETHASONE
     Route: 065
     Dates: start: 20160316, end: 20160316
  11. RANITIDIN [Concomitant]
     Active Substance: RANITIDINE HYDROCHLORIDE
     Route: 065
     Dates: start: 20160412, end: 20160412
  12. METOPROLOL. [Concomitant]
     Active Substance: METOPROLOL
     Indication: HYPERTENSION
  13. LEVOFLOXACIN. [Concomitant]
     Active Substance: LEVOFLOXACIN
     Indication: C-REACTIVE PROTEIN INCREASED
     Route: 065
     Dates: start: 20160330, end: 20160405
  14. GRANISETRON [Concomitant]
     Active Substance: GRANISETRON
     Route: 065
     Dates: start: 20160316, end: 20160316
  15. FOSAPREPITANT [Concomitant]
     Active Substance: FOSAPREPITANT
     Route: 065
     Dates: start: 20160502, end: 20160502
  16. ATORVASTATIN [Concomitant]
     Active Substance: ATORVASTATIN
     Indication: HYPERTENSION
  17. DIMETINDENE [Concomitant]
     Active Substance: DIMETHINDENE
     Route: 065
     Dates: start: 20160412, end: 20160412
  18. NITROLINGUAL [Concomitant]
     Active Substance: NITROGLYCERIN
     Indication: HYPERTENSION
     Route: 065
     Dates: start: 20160323, end: 20160323
  19. CARBOPLATIN. [Suspect]
     Active Substance: CARBOPLATIN
     Indication: NON-SMALL CELL LUNG CANCER
     Dosage: DATE OF LAST DOSE OF CARBOPLATIN 625.26 MG PRIOR TO EVENT ONSET WAS ON 16/MAR/2016
     Route: 042
     Dates: start: 20160316
  20. PANTOPRAZOL [Concomitant]
     Active Substance: PANTOPRAZOLE SODIUM
     Indication: PROPHYLAXIS
  21. DIMETINDENE [Concomitant]
     Active Substance: DIMETHINDENE
     Indication: PROPHYLACTIC CHEMOTHERAPY
     Route: 065
     Dates: start: 20160316, end: 20160316

REACTIONS (1)
  - Infection [Recovered/Resolved]

NARRATIVE: CASE EVENT DATE: 20160401
